FAERS Safety Report 18361331 (Version 1)
Quarter: 2020Q4

REPORT INFORMATION
  Report Type: Spontaneous
  Country: US (occurrence: US)
  Receive Date: 20201008
  Receipt Date: 20201008
  Transmission Date: 20210114
  Serious: No
  Sender: FDA-Public Use
  Company Number: US-GALDERMA-US19074508

PATIENT
  Sex: Female

DRUGS (1)
  1. MIRVASO [Suspect]
     Active Substance: BRIMONIDINE TARTRATE
     Indication: ROSACEA
     Dosage: 0.003%
     Route: 061
     Dates: start: 201912

REACTIONS (7)
  - Erythema [Unknown]
  - Eye swelling [Unknown]
  - Rosacea [Unknown]
  - Headache [Unknown]
  - Skin burning sensation [Unknown]
  - Malaise [Unknown]
  - Sensitive skin [Unknown]

NARRATIVE: CASE EVENT DATE: 201912
